FAERS Safety Report 7704546-X (Version None)
Quarter: 2011Q3

REPORT INFORMATION
  Report Type: 
  Country: None (occurrence: None)
  Receive Date: 20110823
  Receipt Date: 20110805
  Transmission Date: 20111222
  Serious: Yes (Hospitalization)
  Sender: FDA-Public Use
  Company Number: US-GLAXOSMITHKLINE-A0873500A

PATIENT
  Age: 44 Year
  Sex: Male
  Weight: 100 kg

DRUGS (7)
  1. ASPIRIN [Concomitant]
  2. ENALAPRIL MALEATE [Concomitant]
  3. METFORMIN HCL [Concomitant]
  4. AVANDIA [Suspect]
     Indication: DIABETES MELLITUS
     Dosage: 4MG PER DAY
     Route: 048
     Dates: start: 20020101, end: 20081201
  5. JANUVIA [Concomitant]
  6. GLYBURIDE [Concomitant]
  7. VASOTEC [Concomitant]

REACTIONS (2)
  - CEREBROVASCULAR ACCIDENT [None]
  - THALAMIC INFARCTION [None]
